FAERS Safety Report 9069239 (Version 3)
Quarter: 2013Q4

REPORT INFORMATION
  Report Type: Report from Study
  Country: CA (occurrence: CA)
  Receive Date: 20130215
  Receipt Date: 20131216
  Transmission Date: 20140711
  Serious: Yes (Hospitalization, Other)
  Sender: FDA-Public Use
  Company Number: CA-JNJFOC-20130202872

PATIENT
  Age: 46 Year
  Sex: Male
  Weight: 83.9 kg

DRUGS (6)
  1. REMICADE [Suspect]
     Indication: CROHN^S DISEASE
     Route: 042
  2. REMICADE [Suspect]
     Indication: CROHN^S DISEASE
     Dosage: 5 INFUSIONS
     Route: 042
     Dates: start: 20120801
  3. PROZAC [Concomitant]
     Route: 065
  4. ASACOL [Concomitant]
     Route: 065
  5. RABEPRAZOLE [Concomitant]
     Route: 065
  6. ZOPICLONE [Concomitant]
     Route: 065

REACTIONS (3)
  - Umbilical hernia [Recovering/Resolving]
  - Hernia [Recovering/Resolving]
  - Localised oedema [Recovering/Resolving]
